FAERS Safety Report 17246743 (Version 1)
Quarter: 2020Q1

REPORT INFORMATION
  Report Type: Spontaneous
  Country: US (occurrence: US)
  Receive Date: 20200107
  Receipt Date: 20200107
  Transmission Date: 20200409
  Serious: No
  Sender: FDA-Public Use
  Company Number: None

PATIENT
  Age: 63 Year
  Sex: Female
  Weight: 63 kg

DRUGS (8)
  1. TRINTELLIX [Concomitant]
     Active Substance: VORTIOXETINE HYDROBROMIDE
  2. CALCIUM [Concomitant]
     Active Substance: CALCIUM
  3. MAG [Concomitant]
  4. MELATONIN [Concomitant]
     Active Substance: MELATONIN
  5. ZINC. [Concomitant]
     Active Substance: ZINC
  6. MULTIVITAMIN [Concomitant]
     Active Substance: VITAMINS
  7. FLUOROURACIL 5% CREAM [Suspect]
     Active Substance: FLUOROURACIL
     Indication: ACTINIC KERATOSIS
     Dosage: ?          QUANTITY:1 CREAM;?
     Route: 061
     Dates: start: 20191211, end: 20191226
  8. LAMOTRIGINE 200MG, [Concomitant]

REACTIONS (1)
  - Arthralgia [None]

NARRATIVE: CASE EVENT DATE: 20191218
